FAERS Safety Report 9737565 (Version 2)
Quarter: 2013Q4

REPORT INFORMATION
  Report Type: Report from Study
  Country: CA (occurrence: CA)
  Receive Date: 20131208
  Receipt Date: 20131208
  Transmission Date: 20140711
  Serious: Yes (Other)
  Sender: FDA-Public Use
  Company Number: CA-US-EMD SERONO, INC.-7245139

PATIENT
  Age: 32 Year
  Sex: Female

DRUGS (2)
  1. REBIF [Suspect]
     Indication: PRODUCT USED FOR UNKNOWN INDICATION
     Route: 058
     Dates: start: 200701, end: 20121001
  2. REBIF [Suspect]
     Dates: start: 20131021, end: 201311

REACTIONS (8)
  - Caesarean section [Recovered/Resolved]
  - Hot flush [Recovering/Resolving]
  - Injection site scar [Unknown]
  - Feeling cold [Recovering/Resolving]
  - Chills [Recovering/Resolving]
  - Injection site pain [Unknown]
  - Normal newborn [Recovered/Resolved]
  - Maternal exposure timing unspecified [Recovered/Resolved]
